FAERS Safety Report 6129343-0 (Version None)
Quarter: 2009Q1

REPORT INFORMATION
  Report Type: 
  Country: None (occurrence: None)
  Receive Date: 20090323
  Receipt Date: 20090323
  Transmission Date: 20090719
  Serious: Yes (Life-Threatening)
  Sender: FDA-Public Use
  Company Number: None

PATIENT
  Age: 75 Year
  Sex: Female
  Weight: 82.7 kg

DRUGS (1)
  1. TNKASE [Suspect]
     Indication: ACUTE MYOCARDIAL INFARCTION
     Dosage: 45 MG ONCE IV
     Route: 042
     Dates: start: 20080701, end: 20080701

REACTIONS (3)
  - HYPERTENSION [None]
  - INTRACRANIAL HAEMATOMA [None]
  - UNRESPONSIVE TO STIMULI [None]
